FAERS Safety Report 6214808-3 (Version None)
Quarter: 2009Q2

REPORT INFORMATION
  Report Type: 
  Country: None (occurrence: None)
  Receive Date: 20090604
  Receipt Date: 20090528
  Transmission Date: 20091009
  Serious: Yes (Other)
  Sender: FDA-Public Use
  Company Number: B0577276A

PATIENT
  Sex: Female

DRUGS (7)
  1. LAMICTAL [Suspect]
     Indication: EPILEPSY
     Dosage: 100MG THREE TIMES PER DAY
     Route: 065
     Dates: start: 20080701, end: 20080910
  2. ZONISAMIDE [Suspect]
     Indication: EPILEPSY
     Dosage: 200MG TWICE PER DAY
     Route: 065
     Dates: start: 20080701, end: 20080910
  3. TOPAMAX [Suspect]
     Indication: EPILEPSY
     Dosage: 50MG THREE TIMES PER DAY
     Route: 065
     Dates: start: 20080701, end: 20080910
  4. DEPAKENE [Suspect]
     Indication: EPILEPSY
     Dosage: 500MG TWICE PER DAY
     Route: 065
     Dates: start: 20080707, end: 20080910
  5. RIVOTRIL [Suspect]
     Indication: SLEEP DISORDER
     Route: 065
  6. NIMESULIDE [Suspect]
     Indication: BACK PAIN
     Dosage: 200MG TWICE PER DAY
     Route: 065
  7. FOLVITE [Concomitant]
     Dosage: 5MG PER DAY
     Route: 065
     Dates: start: 20080701, end: 20080910

REACTIONS (2)
  - ABORTION INDUCED [None]
  - DRUG EXPOSURE DURING PREGNANCY [None]
